FAERS Safety Report 8485925-2 (Version None)
Quarter: 2012Q3

REPORT INFORMATION
  Report Type: 
  Country: None (occurrence: None)
  Receive Date: 20120703
  Receipt Date: 20120628
  Transmission Date: 20120928
  Serious: Yes (Life-Threatening, Hospitalization, Other)
  Sender: FDA-Public Use
  Company Number: FR-ABBOTT-12P-056-0951082-00

PATIENT
  Sex: Female

DRUGS (4)
  1. LEVOFLOXACIN [Suspect]
     Indication: GASTRIC ULCER
     Route: 048
     Dates: start: 20111129, end: 20111130
  2. CLARITHROMYCIN [Suspect]
     Indication: GASTRIC ULCER
     Route: 048
     Dates: start: 20111128, end: 20111129
  3. CLARITHROMYCIN [Suspect]
     Indication: HELICOBACTER INFECTION
  4. AMOXICILLIN [Suspect]
     Indication: GASTRIC ULCER
     Route: 048
     Dates: start: 20111128, end: 20111130

REACTIONS (6)
  - DYSPNOEA [None]
  - RASH MACULO-PAPULAR [None]
  - ANGIOEDEMA [None]
  - PEAK EXPIRATORY FLOW RATE DECREASED [None]
  - DRUG INTOLERANCE [None]
  - DYSPHAGIA [None]
